FAERS Safety Report 16393777 (Version 1)
Quarter: 2019Q2

REPORT INFORMATION
  Report Type: Spontaneous
  Country: JP (occurrence: JP)
  Receive Date: 20190605
  Receipt Date: 20190605
  Transmission Date: 20190711
  Serious: Yes (Hospitalization)
  Sender: FDA-Public Use
  Company Number: JP-GUERBET-JP-20190075

PATIENT
  Age: 38 Year
  Sex: Female

DRUGS (1)
  1. MAGNESCOPE INTRAVENOUS INJECTION 38% SYRINGE 11ML [Suspect]
     Active Substance: GADOTERATE MEGLUMINE
     Indication: NUCLEAR MAGNETIC RESONANCE IMAGING
     Route: 040
     Dates: start: 20190522, end: 20190522

REACTIONS (4)
  - Face oedema [Recovered/Resolved]
  - Oropharyngeal discomfort [Recovered/Resolved]
  - Generalised erythema [Recovered/Resolved]
  - Dyspnoea [Recovered/Resolved]

NARRATIVE: CASE EVENT DATE: 20190522
